FAERS Safety Report 8365283-4 (Version None)
Quarter: 2012Q2

REPORT INFORMATION
  Report Type: 
  Country: None (occurrence: None)
  Receive Date: 20120516
  Receipt Date: 20120502
  Transmission Date: 20120825
  Serious: Yes (Hospitalization, Other)
  Sender: FDA-Public Use
  Company Number: US-PFIZER INC-2012036833

PATIENT
  Age: 22 Year
  Sex: Female

DRUGS (4)
  1. LEVETIRACETAM [Suspect]
     Indication: CONVULSION
     Dosage: UNK
     Route: 065
  2. DILANTIN-125 [Suspect]
     Indication: CONVULSION
     Dosage: UNK
     Route: 065
  3. PARACETAMOL [Concomitant]
     Indication: PYREXIA
     Dosage: UNK
     Route: 065
  4. MORPHINE [Concomitant]
     Indication: PAIN
     Dosage: UNK
     Route: 065

REACTIONS (2)
  - DRUG RASH WITH EOSINOPHILIA AND SYSTEMIC SYMPTOMS [None]
  - DRUG LEVEL INCREASED [None]
